FAERS Safety Report 5960752-6 (Version None)
Quarter: 2008Q4

REPORT INFORMATION
  Report Type: 
  Country: None (occurrence: None)
  Receive Date: 20081120
  Receipt Date: 20081110
  Transmission Date: 20090506
  Serious: Yes (Other)
  Sender: FDA-Public Use
  Company Number: BR-PFIZER INC-2008095711

PATIENT
  Sex: Female

DRUGS (2)
  1. FRONTAL [Suspect]
     Route: 048
     Dates: start: 20081105
  2. CHLORDIAZEPOXIDE [Concomitant]

REACTIONS (5)
  - ANOREXIA [None]
  - HYPOGLYCAEMIA [None]
  - PANIC DISORDER [None]
  - SYNCOPE [None]
  - TINNITUS [None]
